FAERS Safety Report 15097925 (Version 1)
Quarter: 2018Q3

REPORT INFORMATION
  Report Type: Spontaneous
  Country: JP (occurrence: JP)
  Receive Date: 20180702
  Receipt Date: 20180702
  Transmission Date: 20181010
  Serious: Yes (Death, Other)
  Sender: FDA-Public Use
  Company Number: JP-IPSEN BIOPHARMACEUTICALS, INC.-2018-09643

PATIENT
  Sex: Male

DRUGS (3)
  1. IRINOTECAN LIPOSOME [Suspect]
     Active Substance: IRINOTECAN
     Indication: GASTRIC CANCER STAGE IV
     Dosage: 60 MG/M2
     Route: 065
     Dates: start: 200804, end: 2008
  2. IRINOTECAN LIPOSOME [Suspect]
     Active Substance: IRINOTECAN
     Indication: OFF LABEL USE
     Dosage: 150 MG/M2
     Route: 065
     Dates: start: 200810
  3. CDDP [Suspect]
     Active Substance: CISPLATIN
     Indication: GASTRIC CANCER STAGE IV
     Dosage: 30 MG/M2
     Dates: start: 200804, end: 2008

REACTIONS (7)
  - Hepatic function abnormal [Unknown]
  - Rash [Unknown]
  - Overdose [Unknown]
  - Off label use [Unknown]
  - Renal impairment [Unknown]
  - Fatigue [Unknown]
  - Decreased appetite [Unknown]
